FAERS Safety Report 24893078 (Version 1)
Quarter: 2025Q1

REPORT INFORMATION
  Report Type: Report from Study
  Country: US (occurrence: US)
  Receive Date: 20250128
  Receipt Date: 20250128
  Transmission Date: 20250409
  Serious: Yes (Other)
  Sender: JOHNSON AND JOHNSON
  Company Number: US-JNJFOC-20241252669

PATIENT
  Age: 69 Year
  Sex: Female

DRUGS (4)
  1. STELARA [Suspect]
     Active Substance: USTEKINUMAB
     Indication: Crohn^s disease
     Route: 058
     Dates: start: 20241030
  2. STELARA [Suspect]
     Active Substance: USTEKINUMAB
     Indication: Colitis ulcerative
  3. XANAX [Concomitant]
     Active Substance: ALPRAZOLAM
  4. HUMIRA [Concomitant]
     Active Substance: ADALIMUMAB

REACTIONS (11)
  - Hypotension [Unknown]
  - Infusion related reaction [Unknown]
  - Abdominal distension [Not Recovered/Not Resolved]
  - Vulvovaginal pruritus [Recovering/Resolving]
  - Weight increased [Not Recovered/Not Resolved]
  - Arthralgia [Not Recovered/Not Resolved]
  - Diarrhoea [Recovering/Resolving]
  - Headache [Not Recovered/Not Resolved]
  - Fungal infection [Recovering/Resolving]
  - Neck pain [Not Recovered/Not Resolved]
  - Incorrect drug administration rate [Unknown]

NARRATIVE: CASE EVENT DATE: 20241218
